FAERS Safety Report 25844689 (Version 1)
Quarter: 2025Q3

REPORT INFORMATION
  Report Type: Report from Study
  Country: US (occurrence: US)
  Receive Date: 20250925
  Receipt Date: 20250925
  Transmission Date: 20251021
  Serious: No
  Sender: SUNOVION
  Company Number: US-SUMITOMO PHARMA SWITZERLAND GMBH-2025SPA011994

PATIENT
  Age: 72 Year
  Sex: Male

DRUGS (21)
  1. ORGOVYX [Suspect]
     Active Substance: RELUGOLIX
     Indication: Prostate cancer
     Route: 048
     Dates: start: 20250801, end: 20250801
  2. ORGOVYX [Suspect]
     Active Substance: RELUGOLIX
     Route: 048
  3. ADVIL [Concomitant]
     Active Substance: IBUPROFEN
  4. ASPIRIN [Concomitant]
     Active Substance: ASPIRIN
  5. ATENOLOL [Concomitant]
     Active Substance: ATENOLOL
  6. CETIRIZINE [Concomitant]
     Active Substance: CETIRIZINE HYDROCHLORIDE
  7. COLACE [Concomitant]
     Active Substance: DOCUSATE SODIUM
  8. EXCEDRIN [Concomitant]
     Active Substance: ACETAMINOPHEN\ASPIRIN\CAFFEINE
  9. FLOMAX [Concomitant]
     Active Substance: TAMSULOSIN HYDROCHLORIDE
  10. GABAPENTIN [Concomitant]
     Active Substance: GABAPENTIN
  11. GLIMEPIRIDE [Concomitant]
     Active Substance: GLIMEPIRIDE
  12. JARDIANCE [Concomitant]
     Active Substance: EMPAGLIFLOZIN
  13. LISINOPRIL [Concomitant]
     Active Substance: LISINOPRIL
  14. METFORMIN [Concomitant]
     Active Substance: METFORMIN HYDROCHLORIDE
  15. OMEPRAZOLE [Concomitant]
     Active Substance: OMEPRAZOLE
  16. OZEMPIC [Concomitant]
     Active Substance: SEMAGLUTIDE
  17. COENZYME Q10 [Concomitant]
     Active Substance: DIETARY SUPPLEMENT\UBIDECARENONE
  18. HERBALS\TURMERIC [Concomitant]
     Active Substance: HERBALS\TURMERIC
  19. TYLENOL [Concomitant]
     Active Substance: ACETAMINOPHEN
  20. VASCEPA [Concomitant]
     Active Substance: ICOSAPENT ETHYL
  21. VITAMIN B12 [Concomitant]
     Active Substance: CYANOCOBALAMIN

REACTIONS (5)
  - Accident [Unknown]
  - Hypoaesthesia [Not Recovered/Not Resolved]
  - Peripheral coldness [Unknown]
  - Fall [Unknown]
  - Pain in extremity [Not Recovered/Not Resolved]

NARRATIVE: CASE EVENT DATE: 20250801
